FAERS Safety Report 8693257 (Version 6)
Quarter: 2012Q4

REPORT INFORMATION
  Report Type: 
  Country: US (occurrence: US)
  Receive Date: 20120730
  Receipt Date: 20121102
  Transmission Date: 20130627
  Serious: Yes (Other)
  Sender: FDA-Public Use
  Company Number: US-ABBOTT-12P-163-0958621-00

PATIENT
  Age: 68 None
  Sex: Female
  Weight: 59.02 kg

DRUGS (14)
  1. HUMIRA 40 MG/0.8 ML PEN [Suspect]
     Indication: CROHN^S DISEASE
     Dates: start: 2009
  2. HUMIRA 40 MG/0.8 ML PEN [Suspect]
     Indication: PSORIASIS
  3. AZATHIOPRINE [Concomitant]
     Indication: CROHN^S DISEASE
  4. DILTIAZEM [Concomitant]
     Indication: HYPERTENSION
  5. ESTRADIOL [Concomitant]
     Indication: HORMONE REPLACEMENT THERAPY
  6. CHONDROITIN W/GLUCOSAMINE [Concomitant]
     Indication: PRODUCT USED FOR UNKNOWN INDICATION
  7. PRESAVISION [Concomitant]
     Indication: VITAMIN SUPPLEMENTATION
  8. PRESAVISION [Concomitant]
     Indication: MACULAR DEGENERATION
  9. SLOW RELEASE IRON [Concomitant]
     Indication: MINERAL SUPPLEMENTATION
  10. VITAMIN D3 [Concomitant]
     Indication: VITAMIN SUPPLEMENTATION
  11. FISH OIL [Concomitant]
     Indication: SUPPLEMENTATION THERAPY
  12. B12 [Concomitant]
     Indication: PRODUCT USED FOR UNKNOWN INDICATION
     Route: 060
  13. PURINETHOL [Concomitant]
     Indication: PRODUCT USED FOR UNKNOWN INDICATION
     Dosage: 2 tabs on sunday and thursday
  14. EYE VITAMINS [Concomitant]
     Indication: PRODUCT USED FOR UNKNOWN INDICATION

REACTIONS (15)
  - Skin disorder [Unknown]
  - Squamous cell carcinoma [Recovered/Resolved]
  - Squamous cell carcinoma of skin [Recovering/Resolving]
  - Blood blister [Not Recovered/Not Resolved]
  - Pain [Recovered/Resolved]
  - Chills [Recovered/Resolved]
  - Pyrexia [Recovered/Resolved]
  - Pain in extremity [Recovered/Resolved]
  - Hypertension [Unknown]
  - Pyrexia [Unknown]
  - Chills [Unknown]
  - Abdominal pain [Unknown]
  - Arthralgia [Recovering/Resolving]
  - Pain in extremity [Recovering/Resolving]
  - Injection site haemorrhage [Recovered/Resolved]
